FAERS Safety Report 4825894-7 (Version None)
Quarter: 2005Q4

REPORT INFORMATION
  Report Type: 
  Country: None (occurrence: None)
  Receive Date: 20051111
  Receipt Date: 20050517
  Transmission Date: 20060501
  Serious: Yes (Hospitalization)
  Sender: FDA-Public Use
  Company Number: PHHO2005US07833

PATIENT
  Age: 45 Year
  Sex: Female

DRUGS (7)
  1. ZOLEDRONATE [Suspect]
     Indication: METASTASES TO BONE
     Dosage: 4 MG, TIW
     Route: 042
     Dates: start: 20050303
  2. EPIRUBICIN [Concomitant]
     Indication: BREAST CANCER
     Dosage: 168 MG, TIW
     Route: 042
  3. TAXOTERE [Concomitant]
     Indication: BREAST CANCER
     Dosage: 168 MG, TIW
     Route: 042
  4. COZAAR [Concomitant]
     Indication: HYPERTENSION
     Dosage: 100 MG, UNK
     Route: 048
  5. MULTI-VITAMIN [Concomitant]
  6. AMBIEN [Concomitant]
     Indication: INSOMNIA
     Dosage: 5 MG, UNK
     Route: 048
  7. ATIVAN [Concomitant]
     Indication: ANXIETY
     Dosage: 0.5 MG, UNK
     Route: 048

REACTIONS (19)
  - BREAST MASS [None]
  - CATHETER PLACEMENT [None]
  - CATHETER RELATED INFECTION [None]
  - CHILLS [None]
  - DIARRHOEA [None]
  - ERYTHEMA [None]
  - FATIGUE [None]
  - LIP PAIN [None]
  - LYMPH NODE PAIN [None]
  - MALAISE [None]
  - NAUSEA [None]
  - PHARYNGOLARYNGEAL PAIN [None]
  - PYREXIA [None]
  - STAPHYLOCOCCAL INFECTION [None]
  - TACHYCARDIA [None]
  - TENDERNESS [None]
  - URINARY TRACT INFECTION [None]
  - VOMITING [None]
  - VULVOVAGINAL MYCOTIC INFECTION [None]
